FAERS Safety Report 13332242 (Version 2)
Quarter: 2017Q2

REPORT INFORMATION
  Report Type: Spontaneous
  Country: US (occurrence: US)
  Receive Date: 20170314
  Receipt Date: 20170531
  Transmission Date: 20170830
  Serious: No
  Sender: FDA-Public Use
  Company Number: US-JNJFOC-20170223591

PATIENT
  Age: 77 Year
  Sex: Female
  Weight: 45.81 kg

DRUGS (2)
  1. TYLENOL [Suspect]
     Active Substance: ACETAMINOPHEN
     Indication: PYREXIA
     Route: 048
     Dates: start: 20170221
  2. TYLENOL [Suspect]
     Active Substance: ACETAMINOPHEN
     Route: 048

REACTIONS (4)
  - Incorrect product storage [Unknown]
  - Expired product administered [Unknown]
  - Therapeutic response unexpected [Unknown]
  - Intentional underdose [Unknown]
